FAERS Safety Report 4938395-2 (Version None)
Quarter: 2006Q1

REPORT INFORMATION
  Report Type: 
  Country: None (occurrence: None)
  Receive Date: 20060306
  Receipt Date: 20060220
  Transmission Date: 20060701
  Serious: Yes (Other)
  Sender: FDA-Public Use
  Company Number: US200602003878

PATIENT
  Sex: Female

DRUGS (3)
  1. ALIMTA [Suspect]
     Dates: start: 20051101
  2. VITAMIN B12 [Concomitant]
  3. FOLIC ACID [Concomitant]

REACTIONS (7)
  - BONE PAIN [None]
  - BUTTOCK PAIN [None]
  - CONVULSION [None]
  - NEUROPATHY [None]
  - PAIN [None]
  - PAIN IN EXTREMITY [None]
  - TREMOR [None]
